FAERS Safety Report 9323646 (Version 1)
Quarter: 2013Q2

REPORT INFORMATION
  Report Type: Spontaneous
  Country: AU (occurrence: AU)
  Receive Date: 20130603
  Receipt Date: 20130603
  Transmission Date: 20140414
  Serious: Yes (Other)
  Sender: FDA-Public Use
  Company Number: PHHY2013AU054849

PATIENT
  Age: 16 Year
  Sex: Male

DRUGS (1)
  1. EXJADE [Suspect]
     Indication: IRON OVERLOAD
     Dosage: UNK UKN, UNK

REACTIONS (6)
  - Gastroenteritis viral [Unknown]
  - Culture stool positive [Unknown]
  - Abdominal pain [Unknown]
  - Pyrexia [Unknown]
  - Abdominal discomfort [Unknown]
  - Serum ferritin abnormal [Unknown]
